FAERS Safety Report 10601564 (Version 1)
Quarter: 2014Q4

REPORT INFORMATION
  Report Type: Spontaneous
  Country: DE (occurrence: DE)
  Receive Date: 20141124
  Receipt Date: 20141124
  Transmission Date: 20150529
  Serious: Yes (Other)
  Sender: FDA-Public Use
  Company Number: DE-009507513-1411DEU010355

PATIENT
  Age: 76 Year
  Sex: Female

DRUGS (5)
  1. HYDROCORTISONE. [Concomitant]
     Active Substance: HYDROCORTISONE
     Indication: PRODUCT USED FOR UNKNOWN INDICATION
     Route: 061
  2. PADMA 28 [Concomitant]
     Indication: PRODUCT USED FOR UNKNOWN INDICATION
  3. OVESTIN 1MG CR?ME [Suspect]
     Active Substance: ESTRIOL
     Indication: VAGINAL INFECTION
     Dosage: DAILY DOSE: 0.5 MG (1 MG, 1 IN 2D)
     Route: 067
     Dates: start: 20140813
  4. MYKODERM HEALING GEL [Concomitant]
     Indication: PRODUCT USED FOR UNKNOWN INDICATION
  5. MARCUMAR [Concomitant]
     Active Substance: PHENPROCOUMON
     Indication: PRODUCT USED FOR UNKNOWN INDICATION

REACTIONS (1)
  - Back pain [Unknown]

NARRATIVE: CASE EVENT DATE: 20140823
